FAERS Safety Report 6843788-2 (Version None)
Quarter: 2010Q3

REPORT INFORMATION
  Report Type: 
  Country: None (occurrence: None)
  Receive Date: 20100715
  Receipt Date: 20100701
  Transmission Date: 20110219
  Serious: Yes (Other)
  Sender: FDA-Public Use
  Company Number: PHHY2010US43510

PATIENT
  Sex: Male

DRUGS (6)
  1. ZOMETA [Suspect]
     Dosage: UNK
  2. ZOMETA [Suspect]
     Dosage: UNK
     Dates: start: 20100617
  3. BICALUTAMIDE [Concomitant]
  4. DOXAZOSIN [Concomitant]
  5. SIMVASTATIN [Concomitant]
  6. AVODART [Concomitant]

REACTIONS (4)
  - EPISTAXIS [None]
  - ERYTHEMA [None]
  - HAEMOPTYSIS [None]
  - INCREASED UPPER AIRWAY SECRETION [None]
